FAERS Safety Report 22901051 (Version 5)
Quarter: 2024Q1

REPORT INFORMATION
  Report Type: Report from Study
  Country: IT (occurrence: IT)
  Receive Date: 20230904
  Receipt Date: 20240212
  Transmission Date: 20240410
  Serious: Yes (Other)
  Sender: FDA-Public Use
  Company Number: IT-TAKEDA-2021TUS044232

PATIENT
  Age: 14 Year
  Sex: Male

DRUGS (6)
  1. IDURSULFASE [Suspect]
     Active Substance: IDURSULFASE
     Indication: Mucopolysaccharidosis II
     Dosage: 5 DOSAGE FORM, 1/WEEK
     Route: 042
     Dates: start: 2009
  2. IDURSULFASE [Suspect]
     Active Substance: IDURSULFASE
     Dosage: 5 DOSAGE FORM, 1/WEEK
     Route: 042
  3. IDURSULFASE [Suspect]
     Active Substance: IDURSULFASE
     Dosage: 5 DOSAGE FORM, 1/WEEK
     Route: 042
  4. IDURSULFASE [Suspect]
     Active Substance: IDURSULFASE
     Dosage: 5 DOSAGE FORM, 1/WEEK
     Route: 042
  5. IDURSULFASE [Suspect]
     Active Substance: IDURSULFASE
     Dosage: 5 DOSAGE FORM, 1/WEEK
     Route: 042
  6. IDURSULFASE [Suspect]
     Active Substance: IDURSULFASE
     Dosage: 5 DOSAGE FORM, 1/WEEK
     Route: 042

REACTIONS (5)
  - Hyperpyrexia [Recovered/Resolved]
  - Influenza like illness [Recovered/Resolved]
  - Oral herpes [Recovered/Resolved]
  - COVID-19 [Recovered/Resolved]
  - Pyrexia [Not Recovered/Not Resolved]

NARRATIVE: CASE EVENT DATE: 20210706
